FAERS Safety Report 8065664-2 (Version None)
Quarter: 2012Q1

REPORT INFORMATION
  Report Type: 
  Country: None (occurrence: None)
  Receive Date: 20120117
  Receipt Date: 20120103
  Transmission Date: 20120608
  Serious: Yes (Hospitalization)
  Sender: FDA-Public Use
  Company Number: DSJ-2012-00077

PATIENT
  Age: 78 Year
  Sex: Male
  Weight: 63 kg

DRUGS (9)
  1. GLIMEPIRIDE (GLIMEPIRIDE) (TABLET) (GLIMEPIRIDE) [Concomitant]
  2. CRESTOR [Concomitant]
  3. REBAMIPIDE (REBAMIPIDE) (TABLET) (REBAMIPIDE) [Concomitant]
  4. BASEN (VOGLIBOSE) (TABLET) (VOGLIBOSE) [Concomitant]
  5. VE-NICOTINATE (TOCOPHERYL NICOTINATE) (CAPSULE) (TOCOPHERYL NICOTINATE [Concomitant]
  6. PAIPELAC (ETODOLAC) (TABLET) (ETODOLAC) [Concomitant]
  7. OLMESARTAN MEDOXOMIL [Suspect]
     Indication: HYPERTENSION
     Dosage: 20 MG (20 MG,1 IN 1 D),PER ORAL
     Route: 048
     Dates: start: 20110513, end: 20111115
  8. JANUVIA [Suspect]
     Indication: DIABETES MELLITUS
     Dosage: 50 MG (50 MG,1 IN 1 D),PER ORAL
     Route: 048
     Dates: start: 20110513, end: 20111115
  9. YOUCOBAL (HYDROXOCOBALAMIN ACETATE) (TABLET) (HYDROXOCOBALAMIN ACETATE [Concomitant]

REACTIONS (2)
  - ANTINUCLEAR ANTIBODY POSITIVE [None]
  - INTERSTITIAL LUNG DISEASE [None]
